FAERS Safety Report 25878952 (Version 1)
Quarter: 2025Q4

REPORT INFORMATION
  Report Type: Spontaneous
  Country: US (occurrence: None)
  Receive Date: 20251003
  Receipt Date: 20251003
  Transmission Date: 20260117
  Serious: Yes (Death)
  Sender: FDA-CTU
  Company Number: None

PATIENT
  Age: 69 Year
  Sex: Female

DRUGS (2)
  1. SPIRONOLACTONE [Suspect]
     Active Substance: SPIRONOLACTONE
     Indication: Soft tissue disorder
     Dosage: 25MG DAILY IN THE MORNING?
  2. VENCLEXTA [Suspect]
     Active Substance: VENETOCLAX

REACTIONS (1)
  - Death [None]
